FAERS Safety Report 17978966 (Version 3)
Quarter: 2020Q3

REPORT INFORMATION
  Report Type: Spontaneous
  Country: IT (occurrence: IT)
  Receive Date: 20200703
  Receipt Date: 20200807
  Transmission Date: 20201103
  Serious: Yes (Hospitalization)
  Sender: FDA-Public Use
  Company Number: NVSC2020IT185844

PATIENT
  Age: 73 Year
  Sex: Male

DRUGS (1)
  1. ILARIS [Suspect]
     Active Substance: CANAKINUMAB
     Indication: CORONAVIRUS INFECTION
     Dosage: 300 MG, ONCE/SINGLE (TOTAL)
     Route: 058
     Dates: start: 20200330, end: 20200330

REACTIONS (4)
  - Coronavirus infection [Unknown]
  - Bacterial infection [Unknown]
  - Osteomyelitis [Not Recovered/Not Resolved]
  - Off label use [Not Recovered/Not Resolved]

NARRATIVE: CASE EVENT DATE: 20200514
